FAERS Safety Report 8495792-9 (Version None)
Quarter: 2012Q3

REPORT INFORMATION
  Report Type: 
  Country: None (occurrence: None)
  Receive Date: 20120709
  Receipt Date: 20120627
  Transmission Date: 20120928
  Serious: Yes (Hospitalization)
  Sender: FDA-Public Use
  Company Number: IT-FRI-1000036861

PATIENT
  Sex: Male

DRUGS (10)
  1. PRAVASELECT COMPRESSE [Concomitant]
     Dosage: 20 MG
     Route: 048
  2. ESCITALOPRAM [Suspect]
     Indication: MAJOR DEPRESSION
     Dosage: 10 MG
     Route: 048
     Dates: start: 20070313, end: 20120105
  3. BISOPROLOL FUMARATE [Concomitant]
     Dosage: 2.5 MG
     Route: 048
  4. PLAVIX COMPRESSE [Concomitant]
     Dosage: 75 MG
     Route: 048
  5. ANSIOLIN 0.5% [Concomitant]
     Dosage: 0.5
     Route: 048
  6. TRIATEC COMPRESSE [Concomitant]
     Dosage: 5 MG
     Route: 048
  7. TRIATEC HCT 5MG+25MG COMPRESSE [Concomitant]
     Route: 048
  8. ESCITALOPRAM [Suspect]
  9. ZYPREXA [Suspect]
     Indication: MAJOR DEPRESSION
     Dosage: 2.5 MG
     Route: 048
  10. ZYPREXA [Suspect]

REACTIONS (1)
  - ATRIOVENTRICULAR BLOCK [None]
